FAERS Safety Report 18107434 (Version 1)
Quarter: 2020Q3

REPORT INFORMATION
  Report Type: Spontaneous
  Country: US (occurrence: US)
  Receive Date: 20200804
  Receipt Date: 20200804
  Transmission Date: 20201103
  Serious: Yes (Hospitalization)
  Sender: FDA-Public Use
  Company Number: US-AJANTA PHARMA USA INC.-2088095

PATIENT

DRUGS (3)
  1. COUMADIN [Suspect]
     Active Substance: WARFARIN SODIUM
  2. TYVASO [Suspect]
     Active Substance: TREPROSTINIL
  3. SILDENAFIL (ANDA 206401) [Suspect]
     Active Substance: SILDENAFIL CITRATE

REACTIONS (1)
  - Oedema [Unknown]
